FAERS Safety Report 13196870 (Version 1)
Quarter: 2017Q1

REPORT INFORMATION
  Report Type: Spontaneous
  Country: US (occurrence: US)
  Receive Date: 20170208
  Receipt Date: 20170208
  Transmission Date: 20170428
  Serious: No
  Sender: FDA-Public Use
  Company Number: US-AMGEN-USASP2016167848

PATIENT

DRUGS (36)
  1. APO-TAMOX [Concomitant]
     Active Substance: TAMOXIFEN
     Indication: PROGESTERONE RECEPTOR ASSAY POSITIVE
  2. ADRIAMYCIN [Concomitant]
     Active Substance: DOXORUBICIN HYDROCHLORIDE
     Indication: PROGESTERONE RECEPTOR ASSAY POSITIVE
  3. CYCLOPHOSPHAMIDE. [Concomitant]
     Active Substance: CYCLOPHOSPHAMIDE
     Indication: INVASIVE DUCTAL BREAST CARCINOMA
  4. NEULASTA [Suspect]
     Active Substance: PEGFILGRASTIM
     Indication: PRODUCT USED FOR UNKNOWN INDICATION
     Dosage: UNK
     Route: 065
  5. NOLVADEX [Concomitant]
     Active Substance: TAMOXIFEN CITRATE
     Indication: INTRADUCTAL PROLIFERATIVE BREAST LESION
     Dosage: UNK
  6. APO-TAMOX [Concomitant]
     Active Substance: TAMOXIFEN
     Indication: OESTROGEN RECEPTOR ASSAY POSITIVE
  7. TAMOFEN [Concomitant]
     Active Substance: TAMOXIFEN CITRATE
     Indication: OESTROGEN RECEPTOR ASSAY POSITIVE
  8. TAMOFEN [Concomitant]
     Active Substance: TAMOXIFEN CITRATE
     Indication: PROGESTERONE RECEPTOR ASSAY POSITIVE
  9. TAMONE [Concomitant]
     Indication: INVASIVE DUCTAL BREAST CARCINOMA
  10. CYCLOPHOSPHAMIDE. [Concomitant]
     Active Substance: CYCLOPHOSPHAMIDE
     Indication: OESTROGEN RECEPTOR ASSAY POSITIVE
  11. CYCLOPHOSPHAMIDE. [Concomitant]
     Active Substance: CYCLOPHOSPHAMIDE
     Indication: HUMAN EPIDERMAL GROWTH FACTOR RECEPTOR NEGATIVE
  12. TAXOL [Concomitant]
     Active Substance: PACLITAXEL
     Indication: INVASIVE DUCTAL BREAST CARCINOMA
  13. TAXOL [Concomitant]
     Active Substance: PACLITAXEL
     Indication: PROGESTERONE RECEPTOR ASSAY POSITIVE
  14. NOLVADEX [Concomitant]
     Active Substance: TAMOXIFEN CITRATE
     Indication: OESTROGEN RECEPTOR ASSAY POSITIVE
  15. TAMONE [Concomitant]
     Indication: OESTROGEN RECEPTOR ASSAY POSITIVE
  16. TAMONE [Concomitant]
     Indication: HUMAN EPIDERMAL GROWTH FACTOR RECEPTOR NEGATIVE
  17. TAXOL [Concomitant]
     Active Substance: PACLITAXEL
     Indication: OESTROGEN RECEPTOR ASSAY POSITIVE
  18. TAXOL [Concomitant]
     Active Substance: PACLITAXEL
     Indication: HUMAN EPIDERMAL GROWTH FACTOR RECEPTOR NEGATIVE
  19. NOLVADEX [Concomitant]
     Active Substance: TAMOXIFEN CITRATE
     Indication: PROGESTERONE RECEPTOR ASSAY POSITIVE
  20. NOLVADEX [Concomitant]
     Active Substance: TAMOXIFEN CITRATE
     Indication: HUMAN EPIDERMAL GROWTH FACTOR RECEPTOR NEGATIVE
  21. TAMOFEN [Concomitant]
     Active Substance: TAMOXIFEN CITRATE
     Indication: INTRADUCTAL PROLIFERATIVE BREAST LESION
     Dosage: UNK
  22. TAMOFEN [Concomitant]
     Active Substance: TAMOXIFEN CITRATE
     Indication: INVASIVE DUCTAL BREAST CARCINOMA
  23. ADRIAMYCIN [Concomitant]
     Active Substance: DOXORUBICIN HYDROCHLORIDE
     Indication: OESTROGEN RECEPTOR ASSAY POSITIVE
  24. ADRIAMYCIN [Concomitant]
     Active Substance: DOXORUBICIN HYDROCHLORIDE
     Indication: HUMAN EPIDERMAL GROWTH FACTOR RECEPTOR NEGATIVE
  25. TAXOL [Concomitant]
     Active Substance: PACLITAXEL
     Indication: INTRADUCTAL PROLIFERATIVE BREAST LESION
     Dosage: UNK
     Dates: start: 20161102
  26. NOLVADEX [Concomitant]
     Active Substance: TAMOXIFEN CITRATE
     Indication: INVASIVE DUCTAL BREAST CARCINOMA
  27. APO-TAMOX [Concomitant]
     Active Substance: TAMOXIFEN
     Indication: INTRADUCTAL PROLIFERATIVE BREAST LESION
     Dosage: UNK
  28. APO-TAMOX [Concomitant]
     Active Substance: TAMOXIFEN
     Indication: HUMAN EPIDERMAL GROWTH FACTOR RECEPTOR NEGATIVE
  29. TAMONE [Concomitant]
     Indication: PROGESTERONE RECEPTOR ASSAY POSITIVE
  30. ADRIAMYCIN [Concomitant]
     Active Substance: DOXORUBICIN HYDROCHLORIDE
     Indication: INVASIVE DUCTAL BREAST CARCINOMA
  31. CYCLOPHOSPHAMIDE. [Concomitant]
     Active Substance: CYCLOPHOSPHAMIDE
     Indication: PROGESTERONE RECEPTOR ASSAY POSITIVE
  32. APO-TAMOX [Concomitant]
     Active Substance: TAMOXIFEN
     Indication: INVASIVE DUCTAL BREAST CARCINOMA
  33. TAMOFEN [Concomitant]
     Active Substance: TAMOXIFEN CITRATE
     Indication: HUMAN EPIDERMAL GROWTH FACTOR RECEPTOR NEGATIVE
  34. TAMONE [Concomitant]
     Indication: INTRADUCTAL PROLIFERATIVE BREAST LESION
     Dosage: UNK
  35. ADRIAMYCIN [Concomitant]
     Active Substance: DOXORUBICIN HYDROCHLORIDE
     Indication: INTRADUCTAL PROLIFERATIVE BREAST LESION
     Dosage: UNK
     Route: 065
     Dates: start: 20161102
  36. CYCLOPHOSPHAMIDE. [Concomitant]
     Active Substance: CYCLOPHOSPHAMIDE
     Indication: INTRADUCTAL PROLIFERATIVE BREAST LESION
     Dosage: UNK
     Route: 065
     Dates: start: 20161102

REACTIONS (1)
  - Hair disorder [Unknown]

NARRATIVE: CASE EVENT DATE: 201611
